FAERS Safety Report 10024621 (Version 1)
Quarter: 2014Q1

REPORT INFORMATION
  Report Type: Spontaneous
  Country: GB (occurrence: None)
  Receive Date: 20140203
  Receipt Date: 20140203
  Transmission Date: 20141002
  Serious: Yes (Death)
  Sender: FDA-Public Use
  Company Number: 2014P1000606

PATIENT
  Age: 80 Year
  Sex: Male

DRUGS (4)
  1. HEPARIN [Suspect]
     Indication: THROMBOSIS PROPHYLAXIS
  2. DALTEPARIN [Suspect]
     Indication: THROMBOSIS PROPHYLAXIS
  3. METHYLPREDNISOLONE [Concomitant]
  4. CYCLOPHOSPHAMIDE [Concomitant]

REACTIONS (3)
  - Respiratory failure [None]
  - Circulatory collapse [None]
  - Heparin-induced thrombocytopenia [None]
